FAERS Safety Report 14748609 (Version 1)
Quarter: 2018Q2

REPORT INFORMATION
  Report Type: Spontaneous
  Country: US (occurrence: US)
  Receive Date: 20180411
  Receipt Date: 20180411
  Transmission Date: 20180711
  Serious: No
  Sender: FDA-Public Use
  Company Number: US-AMGEN-USASP2017168986

PATIENT
  Age: 76 Year
  Sex: Female

DRUGS (1)
  1. PROLIA [Suspect]
     Active Substance: DENOSUMAB
     Indication: PRODUCT USED FOR UNKNOWN INDICATION
     Dosage: 60 MG, Q6MO
     Route: 065
     Dates: start: 201706, end: 201706

REACTIONS (5)
  - Dizziness [Unknown]
  - Back pain [Unknown]
  - Vestibular disorder [Unknown]
  - Pain in extremity [Unknown]
  - Ear infection [Unknown]

NARRATIVE: CASE EVENT DATE: 2017
